FAERS Safety Report 10060257 (Version 1)
Quarter: 2014Q2

REPORT INFORMATION
  Report Type: Spontaneous
  Country: US (occurrence: US)
  Receive Date: 20140404
  Receipt Date: 20140404
  Transmission Date: 20141212
  Serious: No
  Sender: FDA-Public Use
  Company Number: US-GLAXOSMITHKLINE-A1059555A

PATIENT
  Age: 39 Year
  Sex: Male

DRUGS (4)
  1. ALLI [Suspect]
     Indication: WEIGHT DECREASED
     Route: 048
     Dates: start: 20140129, end: 20140203
  2. METFORMIN [Concomitant]
  3. GLIPIZIDE [Concomitant]
  4. QUINAPRIL [Concomitant]

REACTIONS (2)
  - Blood urine present [Not Recovered/Not Resolved]
  - Chromaturia [Not Recovered/Not Resolved]
